FAERS Safety Report 8087542-5 (Version None)
Quarter: 2012Q1

REPORT INFORMATION
  Report Type: 
  Country: None (occurrence: None)
  Receive Date: 20120128
  Receipt Date: 20110406
  Transmission Date: 20120608
  Serious: No
  Sender: FDA-Public Use
  Company Number: US-ABBOTT-11P-163-0717886-00

PATIENT
  Sex: Female
  Weight: 79.45 kg

DRUGS (12)
  1. CALCIUM [Concomitant]
     Indication: MINERAL SUPPLEMENTATION
     Route: 048
  2. DEPAKOTE [Concomitant]
     Indication: ANXIETY
  3. PHENTRAMINE [Concomitant]
     Indication: ASTHENIA
     Dosage: PRN
  4. CELEXA [Concomitant]
     Indication: DEPRESSION
     Dosage: ONE DAILY
     Route: 048
  5. MIRTAZAPINE [Concomitant]
     Indication: INSOMNIA
     Route: 048
  6. TRAMADOL HCL [Concomitant]
     Indication: PRODUCT USED FOR UNKNOWN INDICATION
  7. IRON [Concomitant]
     Indication: MINERAL SUPPLEMENTATION
  8. HUMIRA [Suspect]
     Indication: RHEUMATOID ARTHRITIS
     Route: 058
     Dates: start: 20100901
  9. OMEPRAZOLE [Concomitant]
     Indication: DYSPEPSIA
     Dosage: ONE DAILY
  10. FOLIC ACID [Concomitant]
     Indication: RHEUMATOID ARTHRITIS
  11. PHENTRAMINE [Concomitant]
     Indication: WEIGHT DECREASED
  12. METHOTREXATE [Concomitant]
     Indication: RHEUMATOID ARTHRITIS
     Dosage: SIX TABLETS ON SATURDAYS WEEKLY
     Route: 048

REACTIONS (4)
  - FATIGUE [None]
  - WEIGHT INCREASED [None]
  - HYPERSOMNIA [None]
  - DECREASED INTEREST [None]
